FAERS Safety Report 6095796-X (Version None)
Quarter: 2009Q1

REPORT INFORMATION
  Report Type: 
  Country: None (occurrence: None)
  Receive Date: 20090227
  Receipt Date: 20080724
  Transmission Date: 20090719
  Serious: No
  Sender: FDA-Public Use
  Company Number: A0733398A

PATIENT
  Age: 20 Year
  Sex: Female

DRUGS (1)
  1. LAMICTAL [Suspect]
     Indication: BIPOLAR DISORDER
     Route: 048
     Dates: end: 20080601

REACTIONS (1)
  - ALOPECIA [None]
